FAERS Safety Report 4865149-8 (Version None)
Quarter: 2005Q4

REPORT INFORMATION
  Report Type: 
  Country: None (occurrence: None)
  Receive Date: 20051223
  Receipt Date: 20050523
  Transmission Date: 20060501
  Serious: Yes (Death, Hospitalization)
  Sender: FDA-Public Use
  Company Number: DE-BRACCO-BRO-008706

PATIENT
  Sex: Male

DRUGS (2)
  1. SOLUTRAST [Suspect]
     Route: 042
     Dates: start: 20050504, end: 20050504
  2. SOLUTRAST [Suspect]
     Route: 042
     Dates: start: 20050504, end: 20050504

REACTIONS (2)
  - ANAPHYLACTIC REACTION [None]
  - CONTRAST MEDIA REACTION [None]
